FAERS Safety Report 21701598 (Version 3)
Quarter: 2023Q1

REPORT INFORMATION
  Report Type: Spontaneous
  Country: FR (occurrence: FR)
  Receive Date: 20221208
  Receipt Date: 20230210
  Transmission Date: 20230418
  Serious: Yes (Death, Life-Threatening, Hospitalization)
  Sender: FDA-Public Use
  Company Number: FR-SERVIER-S22010234

PATIENT
  Age: 53 Year
  Sex: Female

DRUGS (3)
  1. VERAPAMIL HCL [Suspect]
     Active Substance: VERAPAMIL HYDROCHLORIDE
     Dosage: QD SINGLE
     Route: 065
  2. AMLODIPINE BESYLATE [Suspect]
     Active Substance: AMLODIPINE BESYLATE
     Dosage: QD SINGLE
     Route: 065
  3. PERINDOPRIL [Suspect]
     Active Substance: PERINDOPRIL
     Dosage: SINGLE
     Route: 065

REACTIONS (8)
  - Shock [Fatal]
  - Multiple organ dysfunction syndrome [Fatal]
  - Cardiac arrest [Fatal]
  - Atrioventricular block [Fatal]
  - Sinoatrial block [Fatal]
  - Conduction disorder [Fatal]
  - Intentional overdose [Fatal]
  - Off label use [Unknown]

NARRATIVE: CASE EVENT DATE: 20140101
